FAERS Safety Report 10166450 (Version 1)
Quarter: 2014Q2

REPORT INFORMATION
  Report Type: Spontaneous
  Country: US (occurrence: None)
  Receive Date: 20140509
  Receipt Date: 20140509
  Transmission Date: 20141212
  Serious: No
  Sender: FDA-Public Use
  Company Number: None

PATIENT
  Sex: Female

DRUGS (1)
  1. VENLAFAXINE 150 MG [Suspect]
     Indication: DEPRESSION
     Dosage: 150MG XR PO
     Route: 048
     Dates: start: 201109

REACTIONS (3)
  - Product substitution issue [None]
  - Depression [None]
  - Anxiety [None]
